FAERS Safety Report 13804830 (Version 1)
Quarter: 2017Q3

REPORT INFORMATION
  Report Type: Spontaneous
  Country: US (occurrence: US)
  Receive Date: 20170728
  Receipt Date: 20170728
  Transmission Date: 20171127
  Serious: No
  Sender: FDA-Public Use
  Company Number: US-PFIZER INC-2017324123

PATIENT
  Age: 52 Year
  Sex: Female

DRUGS (11)
  1. PHENOBARBITAL. [Suspect]
     Active Substance: PHENOBARBITAL
     Dosage: UNK
  2. GENTAMICIN SULFATE. [Suspect]
     Active Substance: GENTAMICIN SULFATE
     Dosage: UNK
  3. DEPAKOTE [Suspect]
     Active Substance: DIVALPROEX SODIUM
     Dosage: UNK
  4. THORAZINE [Suspect]
     Active Substance: CHLORPROMAZINE
     Dosage: UNK
  5. VANCOMYCIN HCL [Suspect]
     Active Substance: VANCOMYCIN HYDROCHLORIDE
     Dosage: UNK
  6. ZETIA [Suspect]
     Active Substance: EZETIMIBE
     Dosage: UNK
  7. LYRICA [Suspect]
     Active Substance: PREGABALIN
     Dosage: UNK
  8. MELLARIL [Suspect]
     Active Substance: THIORIDAZINE HYDROCHLORIDE
     Dosage: UNK
  9. HALDOL [Suspect]
     Active Substance: HALOPERIDOL
     Dosage: UNK
  10. LORAZEPAM. [Suspect]
     Active Substance: LORAZEPAM
     Dosage: UNK
  11. PROZAC [Suspect]
     Active Substance: FLUOXETINE HYDROCHLORIDE
     Dosage: UNK

REACTIONS (1)
  - Drug hypersensitivity [Unknown]
